FAERS Safety Report 5236031-1 (Version None)
Quarter: 2007Q1

REPORT INFORMATION
  Report Type: 
  Country: None (occurrence: None)
  Receive Date: 20061208
  Receipt Date: 20060523
  Transmission Date: 20070707
  Serious: Yes (Other)
  Sender: FDA-Public Use
  Company Number: 2006UW10053

PATIENT
  Age: 81 Year
  Sex: Female
  Weight: 63.502 kg

DRUGS (11)
  1. CRESTOR [Suspect]
     Indication: BLOOD CHOLESTEROL INCREASED
     Dosage: 10 MG PO
     Route: 048
     Dates: start: 20060510
  2. HUMALOG [Concomitant]
  3. LANTUS [Concomitant]
  4. PREVACID [Concomitant]
  5. ZOLOFT [Concomitant]
  6. WELLBUTRIN [Concomitant]
  7. PREMARIN [Concomitant]
  8. ASPIRIN [Concomitant]
  9. CALCIUM [Concomitant]
  10. MULTI-VITAMINS [Concomitant]
  11. ADVAIR DISKUS 100/50 [Concomitant]

REACTIONS (2)
  - MUSCULAR WEAKNESS [None]
  - TREMOR [None]
